FAERS Safety Report 19901133 (Version 2)
Quarter: 2021Q4

REPORT INFORMATION
  Report Type: Report from Study
  Country: US (occurrence: US)
  Receive Date: 20210929
  Receipt Date: 20211126
  Transmission Date: 20220303
  Serious: Yes (Other)
  Sender: FDA-Public Use
  Company Number: US-UCBSA-2021044938

PATIENT
  Sex: Female

DRUGS (2)
  1. LEVETIRACETAM [Suspect]
     Active Substance: LEVETIRACETAM
     Indication: Seizure
     Dosage: 250MG MORNING AND 500MG EVENING, 2X/DAY (BID)
     Dates: start: 2001
  2. KEPPRA XR [Concomitant]
     Active Substance: LEVETIRACETAM
     Indication: Product used for unknown indication
     Dosage: UNK

REACTIONS (2)
  - Blindness [Not Recovered/Not Resolved]
  - Product use issue [Unknown]
